FAERS Safety Report 10722121 (Version 1)
Quarter: 2015Q1

REPORT INFORMATION
  Report Type: Spontaneous
  Country: DE (occurrence: DE)
  Receive Date: 20150120
  Receipt Date: 20150120
  Transmission Date: 20150721
  Serious: Yes (Congenital Anomaly, Other)
  Sender: FDA-Public Use
  Company Number: GXKR2015DE000582

PATIENT

DRUGS (3)
  1. L-THYROXIN [Concomitant]
     Active Substance: LEVOTHYROXINE SODIUM
     Indication: HYPOTHYROIDISM
     Dosage: 125 [?G/D ]
     Route: 064
     Dates: start: 20131029, end: 20140718
  2. BISOPROLOL [Suspect]
     Active Substance: BISOPROLOL
     Indication: HYPERTENSION
     Dosage: 5 [MG/D ]
     Route: 064
     Dates: start: 20131029, end: 20140718
  3. FOLIO FORTE [Concomitant]
     Active Substance: FOLIC ACID\VITAMINS
     Indication: PROPHYLAXIS OF NEURAL TUBE DEFECT
     Dosage: 0.8 [MG/D ]
     Route: 064
     Dates: start: 20131029, end: 20140718

REACTIONS (2)
  - Congenital cystic kidney disease [Not Recovered/Not Resolved]
  - Small for dates baby [Recovering/Resolving]

NARRATIVE: CASE EVENT DATE: 20140718
